FAERS Safety Report 5141905-6 (Version None)
Quarter: 2006Q4

REPORT INFORMATION
  Report Type: 
  Country: None (occurrence: None)
  Receive Date: 20060919
  Receipt Date: 20060526
  Transmission Date: 20070319
  Serious: No
  Sender: FDA-Public Use
  Company Number: 2006US001185

PATIENT
  Age: 66 Year
  Sex: Female

DRUGS (8)
  1. VESICARE [Suspect]
     Indication: POLLAKIURIA
     Dosage: 5 MG, ORAL
     Route: 048
     Dates: start: 20060525
  2. CADUET (AMLODIPINE BESILATE, ATORVASTATIN CALCIUM) [Concomitant]
  3. TENORMIN [Concomitant]
  4. PREVACID [Concomitant]
  5. NAPROSYN [Concomitant]
  6. DARVOCET (DEXTROPROPOXYPHENE NAPSILATE) [Concomitant]
  7. LOZOL [Concomitant]
  8. REGLAN [Concomitant]

REACTIONS (1)
  - HEADACHE [None]
